FAERS Safety Report 6048326-2 (Version None)
Quarter: 2009Q1

REPORT INFORMATION
  Report Type: 
  Country: None (occurrence: None)
  Receive Date: 20090123
  Receipt Date: 20090113
  Transmission Date: 20090719
  Serious: Yes (Hospitalization)
  Sender: FDA-Public Use
  Company Number: JP-PFIZER INC-2008100651

PATIENT

DRUGS (5)
  1. VFEND [Suspect]
     Indication: BRONCHOPULMONARY ASPERGILLOSIS
     Dosage: 200 MG, 2X/DAY
     Route: 042
     Dates: start: 20080326, end: 20080402
  2. THEODUR ^ELAN^ [Concomitant]
     Dosage: UNK
     Route: 048
  3. MUCODYNE [Concomitant]
     Dosage: UNK
     Route: 048
  4. CALSLOT [Concomitant]
     Dosage: UNK
     Route: 048
  5. SOLON [Concomitant]
     Dosage: UNK
     Route: 048

REACTIONS (1)
  - LUNG DISORDER [None]
